FAERS Safety Report 7905758-2 (Version None)
Quarter: 2011Q4

REPORT INFORMATION
  Report Type: 
  Country: None (occurrence: None)
  Receive Date: 20111108
  Receipt Date: 20111026
  Transmission Date: 20120403
  Serious: Yes (Other)
  Sender: FDA-Public Use
  Company Number: 2011P1009730

PATIENT
  Age: 47 Year
  Sex: Female
  Weight: 89.8122 kg

DRUGS (9)
  1. VALIUM   MILK [Concomitant]
  2. FENTANYL-75 [Suspect]
     Indication: BACK PAIN
     Dosage: 1 PATCH;Q3D;TDER
     Route: 062
     Dates: start: 20110501
  3. LISINOPRIL [Concomitant]
  4. PHENOBARBITAL TAB [Concomitant]
  5. SOMA [Concomitant]
  6. COREG [Concomitant]
  7. PERCOCET [Concomitant]
  8. THISTLE [Concomitant]
  9. NORVASC [Concomitant]

REACTIONS (10)
  - DRUG WITHDRAWAL SYNDROME [None]
  - CHILLS [None]
  - DEHYDRATION [None]
  - DECREASED APPETITE [None]
  - POSTOPERATIVE WOUND INFECTION [None]
  - BODY TEMPERATURE INCREASED [None]
  - DRUG INEFFECTIVE [None]
  - VOMITING [None]
  - HEADACHE [None]
  - ABDOMINAL PAIN UPPER [None]
